FAERS Safety Report 16884871 (Version 1)
Quarter: 2019Q4

REPORT INFORMATION
  Report Type: Report from Study
  Country: US (occurrence: US)
  Receive Date: 20191004
  Receipt Date: 20191004
  Transmission Date: 20200122
  Serious: Yes (Other)
  Sender: FDA-Public Use
  Company Number: US-ROCHE-2423848

PATIENT
  Age: 45 Year
  Sex: Female

DRUGS (1)
  1. ATEZOLIZUMAB. [Suspect]
     Active Substance: ATEZOLIZUMAB
     Indication: MALIGNANT PERITONEAL NEOPLASM
     Route: 042

REACTIONS (9)
  - Rash macular [Unknown]
  - White blood cell count decreased [Unknown]
  - Lymphocyte count decreased [Unknown]
  - Blood bicarbonate decreased [Unknown]
  - Blood lactate dehydrogenase [Unknown]
  - Viral infection [Unknown]
  - Anaemia [Unknown]
  - Eosinophilia [Unknown]
  - Hyponatraemia [Unknown]
